FAERS Safety Report 12539226 (Version 2)
Quarter: 2016Q3

REPORT INFORMATION
  Report Type: Spontaneous
  Country: JP (occurrence: JP)
  Receive Date: 20160708
  Receipt Date: 20160816
  Transmission Date: 20161109
  Serious: Yes (Other)
  Sender: FDA-Public Use
  Company Number: PHJP2016JP019159

PATIENT
  Age: 61 Year
  Sex: Female

DRUGS (1)
  1. ZOMETA [Suspect]
     Active Substance: ZOLEDRONIC ACID
     Indication: METASTASES TO BONE
     Dosage: 4 MG, UNK
     Route: 041
     Dates: start: 201509, end: 201511

REACTIONS (5)
  - Osteomyelitis [Recovering/Resolving]
  - Pain [Unknown]
  - Purulence [Unknown]
  - Tooth disorder [Unknown]
  - Swelling [Unknown]

NARRATIVE: CASE EVENT DATE: 201512
